FAERS Safety Report 9869499 (Version 2)
Quarter: 2014Q2

REPORT INFORMATION
  Report Type: Spontaneous
  Country: US (occurrence: US)
  Receive Date: 20140205
  Receipt Date: 20140424
  Transmission Date: 20141212
  Serious: Yes (Hospitalization)
  Sender: FDA-Public Use
  Company Number: US-PFIZER INC-2014029198

PATIENT
  Age: 56 Year
  Sex: Male
  Weight: 90.7 kg

DRUGS (1)
  1. VFEND [Suspect]
     Dosage: 100 MG, 2X/DAY
     Dates: start: 20130809

REACTIONS (2)
  - Tooth abscess [Recovered/Resolved]
  - Pyrexia [Unknown]
